FAERS Safety Report 14063695 (Version 3)
Quarter: 2022Q1

REPORT INFORMATION
  Report Type: Report from Study
  Country: US (occurrence: US)
  Receive Date: 20171009
  Receipt Date: 20220303
  Transmission Date: 20220423
  Serious: Yes (Other)
  Sender: FDA-Public Use
  Company Number: US-TEVA-812909USA

PATIENT
  Age: 79 Year
  Sex: Female

DRUGS (2)
  1. AUSTEDO [Suspect]
     Active Substance: DEUTETRABENAZINE
     Indication: Tardive dyskinesia
     Dosage: WAS IN WEEK 1 TITRATION
     Route: 065
     Dates: start: 20170929, end: 20171001
  2. AUSTEDO [Suspect]
     Active Substance: DEUTETRABENAZINE
     Dosage: RESTART DATE NOT REPORTED
     Route: 065

REACTIONS (3)
  - Throat tightness [Recovering/Resolving]
  - Palpitations [Recovering/Resolving]
  - Dizziness [Recovering/Resolving]

NARRATIVE: CASE EVENT DATE: 20170101
